FAERS Safety Report 4323483-4 (Version None)
Quarter: 2004Q1

REPORT INFORMATION
  Report Type: 
  Country: None (occurrence: None)
  Receive Date: 20040324
  Receipt Date: 20040324
  Transmission Date: 20041129
  Serious: Yes (Other)
  Sender: FDA-Public Use
  Company Number: None

PATIENT
  Sex: Male
  Weight: 94.8018 kg

DRUGS (13)
  1. LINEZOLID 600 MG [Suspect]
     Indication: URINARY TRACT INFECTION STAPHYLOCOCCAL
     Dosage: 600 MG TWICE A DAY ORAL
     Route: 048
     Dates: start: 20040305, end: 20040308
  2. NIFEDIPINE [Concomitant]
  3. PHENAZOPYRIDINE HCL TAB [Concomitant]
  4. TRAVAPROST [Concomitant]
  5. COSOPT [Concomitant]
  6. IRBESARTAN [Concomitant]
  7. GLIPIZIDE [Concomitant]
  8. CLONIDINE [Concomitant]
  9. ATORVASTATIN [Concomitant]
  10. NPH INSULIN [Concomitant]
  11. METOPROLOL [Concomitant]
  12. SERTRALINE HCL [Concomitant]
  13. CLOPIDOGREL [Concomitant]

REACTIONS (2)
  - NAUSEA [None]
  - VOMITING [None]
